FAERS Safety Report 16785827 (Version 2)
Quarter: 2019Q3

REPORT INFORMATION
  Report Type: Spontaneous
  Country: US (occurrence: US)
  Receive Date: 20190909
  Receipt Date: 20190912
  Transmission Date: 20191005
  Serious: No
  Sender: FDA-Public Use
  Company Number: US-PFIZER INC-2019364187

PATIENT
  Age: 80 Year
  Sex: Female

DRUGS (2)
  1. PREMARIN [Suspect]
     Active Substance: ESTROGENS, CONJUGATED
     Dosage: 0.5 G, AS NEEDED (EXTERNALLY EVERY NIGHT PRN)
     Route: 067
  2. PREMARIN [Suspect]
     Active Substance: ESTROGENS, CONJUGATED
     Dosage: 0.5 G, 1X/DAY(INSERT 0.5 GRAM INTO VAGINA EACH NIGHT)
     Route: 067

REACTIONS (3)
  - Off label use [Unknown]
  - Hypoacusis [Unknown]
  - Product use issue [Unknown]
